FAERS Safety Report 15313194 (Version 4)
Quarter: 2019Q1

REPORT INFORMATION
  Report Type: Report from Study
  Country: US (occurrence: US)
  Receive Date: 20180823
  Receipt Date: 20190204
  Transmission Date: 20190417
  Serious: Yes (Hospitalization)
  Sender: FDA-Public Use
  Company Number: US-ACTELION-A-US2018-177664

PATIENT
  Age: 23 Month
  Sex: Male
  Weight: 6.35 kg

DRUGS (3)
  1. REVATIO [Concomitant]
     Active Substance: SILDENAFIL CITRATE
  2. WARFARIN [Concomitant]
     Active Substance: WARFARIN
  3. TRACLEER [Suspect]
     Active Substance: BOSENTAN
     Indication: PULMONARY ARTERIAL HYPERTENSION
     Dosage: 31.25 MG, BID
     Route: 048

REACTIONS (5)
  - Condition aggravated [Unknown]
  - Pulmonary oedema [Unknown]
  - Cardiac operation [Unknown]
  - Cardiac dysfunction [Unknown]
  - Brain natriuretic peptide increased [Unknown]
